FAERS Safety Report 5076763-1 (Version None)
Quarter: 2006Q3

REPORT INFORMATION
  Report Type: 
  Country: None (occurrence: None)
  Receive Date: 20060807
  Receipt Date: 20060725
  Transmission Date: 20061208
  Serious: Yes (Hospitalization)
  Sender: FDA-Public Use
  Company Number: FR200607000872

PATIENT
  Age: 84 Year
  Sex: Female

DRUGS (4)
  1. FORTEO [Suspect]
     Indication: OSTEOPOROSIS
     Dosage: 20 UG, DAILY (1/D), SUBCUTANEOUS
     Route: 058
     Dates: start: 20060227, end: 20060701
  2. FORTEO [Concomitant]
  3. APROVEL (IRBESARTAN) TABLET [Concomitant]
  4. TRIVASTAL (PIRIBEDIL) TABLET [Concomitant]

REACTIONS (1)
  - ATRIAL FIBRILLATION [None]
